FAERS Safety Report 17722182 (Version 4)
Quarter: 2022Q2

REPORT INFORMATION
  Report Type: Report from Study
  Country: CA (occurrence: CA)
  Receive Date: 20200429
  Receipt Date: 20220413
  Transmission Date: 20220720
  Serious: Yes (Other)
  Sender: FDA-Public Use
  Company Number: None

PATIENT
  Age: 62 Year
  Sex: Male

DRUGS (2)
  1. VOTRIENT [Suspect]
     Active Substance: PAZOPANIB HYDROCHLORIDE
     Indication: Metastatic renal cell carcinoma
     Dosage: 800 MG, UNK
     Route: 048
     Dates: start: 20160205
  2. VOTRIENT [Suspect]
     Active Substance: PAZOPANIB HYDROCHLORIDE
     Dosage: UNK, OTHER, (3 TABLETS (600 MG) ON DAY 1 AND 2 TABLETS (400 MG) ON DAY 2)
     Route: 048
     Dates: start: 20160205

REACTIONS (6)
  - Spinal fracture [Unknown]
  - Memory impairment [Unknown]
  - Wound [Not Recovered/Not Resolved]
  - Fall [Unknown]
  - Infection [Unknown]
  - Inappropriate schedule of product administration [Unknown]

NARRATIVE: CASE EVENT DATE: 20200303
